FAERS Safety Report 6207799-2 (Version None)
Quarter: 2009Q2

REPORT INFORMATION
  Report Type: 
  Country: None (occurrence: None)
  Receive Date: 20090522
  Receipt Date: 20090506
  Transmission Date: 20091009
  Serious: Yes (Death)
  Sender: FDA-Public Use
  Company Number: DSA_33607_2009

PATIENT
  Age: 67 Year
  Sex: Female

DRUGS (2)
  1. ENALAPRIL MALEATE AND HYDROCHLOROTHIAZIDE [Suspect]
     Indication: CARDIAC FAILURE CONGESTIVE
     Dosage: (10-25 MG, TWICE DAILY ORAL)
     Route: 048
     Dates: start: 19920219, end: 19920229
  2. ADALAT [Concomitant]

REACTIONS (2)
  - CARDIAC ARREST [None]
  - EXTRASYSTOLES [None]
